FAERS Safety Report 4195086 (Version 4)
Quarter: 2020Q3

REPORT INFORMATION
  Report Type: Report from Study
  Country: US (occurrence: US)
  Receive Date: 20040824
  Receipt Date: 20041105
  Transmission Date: 20201104
  Serious: Yes (Hospitalization)
  Sender: FDA-Public Use
  Company Number: US-JNJFOC-20040805427

PATIENT
  Age: 45 Year
  Sex: Female

DRUGS (61)
  1. ENBREL [Concomitant]
     Active Substance: ETANERCEPT
     Route: 058
  2. ENBREL [Concomitant]
     Active Substance: ETANERCEPT
     Route: 058
  3. ENBREL [Concomitant]
     Active Substance: ETANERCEPT
     Route: 058
  4. ENBREL [Concomitant]
     Active Substance: ETANERCEPT
     Route: 058
  5. ENBREL [Concomitant]
     Active Substance: ETANERCEPT
     Route: 058
  6. ENBREL [Concomitant]
     Active Substance: ETANERCEPT
     Route: 058
  7. FOLIC ACID. [Concomitant]
     Active Substance: FOLIC ACID
     Route: 049
  8. FIORICET [Concomitant]
     Active Substance: ACETAMINOPHEN\BUTALBITAL\CAFFEINE
     Route: 049
  9. FIORICET [Concomitant]
     Active Substance: ACETAMINOPHEN\BUTALBITAL\CAFFEINE
     Route: 049
  10. INFLIXIMAB [Suspect]
     Active Substance: INFLIXIMAB
     Route: 042
  11. ENBREL [Concomitant]
     Active Substance: ETANERCEPT
     Route: 058
  12. ENBREL [Concomitant]
     Active Substance: ETANERCEPT
     Route: 058
  13. ENBREL [Concomitant]
     Active Substance: ETANERCEPT
     Route: 058
  14. ENBREL [Concomitant]
     Active Substance: ETANERCEPT
     Route: 058
  15. ENBREL [Concomitant]
     Active Substance: ETANERCEPT
     Route: 058
  16. ENBREL [Concomitant]
     Active Substance: ETANERCEPT
     Route: 058
  17. ENBREL [Concomitant]
     Active Substance: ETANERCEPT
     Route: 058
  18. ENBREL [Concomitant]
     Active Substance: ETANERCEPT
     Route: 058
  19. ENBREL [Concomitant]
     Active Substance: ETANERCEPT
     Route: 058
  20. PROZAC [Concomitant]
     Active Substance: FLUOXETINE HYDROCHLORIDE
     Route: 049
  21. DARVOCET?N 100 [Concomitant]
     Active Substance: ACETAMINOPHEN\PROPOXYPHENE NAPSYLATE
     Route: 049
  22. INFLIXIMAB [Suspect]
     Active Substance: INFLIXIMAB
     Indication: RHEUMATOID ARTHRITIS
     Dosage: NO DOSE GIVEN
     Route: 042
  23. ENBREL [Concomitant]
     Active Substance: ETANERCEPT
     Route: 058
  24. ENBREL [Concomitant]
     Active Substance: ETANERCEPT
     Route: 058
  25. ENBREL [Concomitant]
     Active Substance: ETANERCEPT
     Route: 058
  26. METHOTREXATE. [Concomitant]
     Active Substance: METHOTREXATE
     Route: 030
  27. CATAFLAM [Concomitant]
     Active Substance: DICLOFENAC POTASSIUM
     Route: 049
  28. ENBREL [Concomitant]
     Active Substance: ETANERCEPT
     Route: 058
  29. ENBREL [Concomitant]
     Active Substance: ETANERCEPT
     Route: 058
  30. ENBREL [Concomitant]
     Active Substance: ETANERCEPT
     Route: 058
  31. AGESTYN [Concomitant]
     Route: 049
  32. ENBREL [Concomitant]
     Active Substance: ETANERCEPT
     Route: 058
  33. ENBREL [Concomitant]
     Active Substance: ETANERCEPT
     Route: 058
  34. ENBREL [Concomitant]
     Active Substance: ETANERCEPT
     Route: 058
  35. ENBREL [Concomitant]
     Active Substance: ETANERCEPT
     Route: 058
  36. IMITREX [Concomitant]
     Active Substance: SUMATRIPTAN SUCCINATE
     Route: 030
  37. FIORICET [Concomitant]
     Active Substance: ACETAMINOPHEN\BUTALBITAL\CAFFEINE
     Route: 049
  38. ENBREL [Concomitant]
     Active Substance: ETANERCEPT
     Route: 058
  39. ENBREL [Concomitant]
     Active Substance: ETANERCEPT
     Route: 058
  40. ENBREL [Concomitant]
     Active Substance: ETANERCEPT
     Route: 058
  41. ENBREL [Concomitant]
     Active Substance: ETANERCEPT
     Route: 058
  42. ENBREL [Concomitant]
     Active Substance: ETANERCEPT
     Route: 058
  43. CLARITIN [Concomitant]
     Active Substance: LORATADINE
     Route: 049
  44. TENORMIN [Concomitant]
     Active Substance: ATENOLOL
     Route: 049
  45. ENBREL [Concomitant]
     Active Substance: ETANERCEPT
     Route: 058
  46. ENBREL [Concomitant]
     Active Substance: ETANERCEPT
     Route: 058
  47. ENBREL [Concomitant]
     Active Substance: ETANERCEPT
     Route: 058
  48. ENBREL [Concomitant]
     Active Substance: ETANERCEPT
     Route: 058
  49. ENBREL [Concomitant]
     Active Substance: ETANERCEPT
     Route: 058
  50. NEXIUM [Concomitant]
     Active Substance: ESOMEPRAZOLE MAGNESIUM
     Route: 049
  51. DARVOCET?N 100 [Concomitant]
     Active Substance: ACETAMINOPHEN\PROPOXYPHENE NAPSYLATE
     Route: 049
  52. ENBREL [Concomitant]
     Active Substance: ETANERCEPT
     Route: 058
  53. ENBREL [Concomitant]
     Active Substance: ETANERCEPT
     Route: 058
  54. ENBREL [Concomitant]
     Active Substance: ETANERCEPT
     Route: 058
  55. ENBREL [Concomitant]
     Active Substance: ETANERCEPT
     Route: 058
  56. ENBREL [Concomitant]
     Active Substance: ETANERCEPT
     Route: 058
  57. ENBREL [Concomitant]
     Active Substance: ETANERCEPT
     Route: 058
  58. ENBREL [Concomitant]
     Active Substance: ETANERCEPT
     Route: 058
  59. ENBREL [Concomitant]
     Active Substance: ETANERCEPT
     Route: 058
  60. POTASSIUM [Concomitant]
     Active Substance: POTASSIUM
     Route: 049
  61. AMBIEN [Concomitant]
     Active Substance: ZOLPIDEM TARTRATE
     Route: 049

REACTIONS (8)
  - Abdominal tenderness [None]
  - Nausea [None]
  - Dyspepsia [None]
  - Dizziness [None]
  - Gastrointestinal sounds abnormal [None]
  - Gastrooesophageal reflux disease [None]
  - Mallory-Weiss syndrome [None]
  - Haematemesis [Recovered/Resolved]

NARRATIVE: CASE EVENT DATE: 20040814
